FAERS Safety Report 5699182-3 (Version None)
Quarter: 2008Q2

REPORT INFORMATION
  Report Type: 
  Country: None (occurrence: None)
  Receive Date: 20080407
  Receipt Date: 20080324
  Transmission Date: 20081010
  Serious: Yes (Hospitalization)
  Sender: FDA-Public Use
  Company Number: 430007M08USA

PATIENT
  Age: 20 Year
  Sex: Male
  Weight: 90 kg

DRUGS (7)
  1. NOVANTRONE [Suspect]
     Indication: ACUTE MYELOID LEUKAEMIA
     Dosage: 16.8 MG, 1 IN 1 DAYS, INTRAVENOUS
     Route: 042
     Dates: start: 20080211, end: 20080215
  2. CEP-701 (INVESTIGATIONAL DRUG) [Suspect]
     Indication: ACUTE MYELOID LEUKAEMIA
     Dosage: 80 MG, 2 IN 1 DAYS, ORAL
     Route: 048
     Dates: start: 20080218, end: 20080310
  3. ETOPOSIDE [Suspect]
     Indication: ACUTE MYELOID LEUKAEMIA
     Dosage: 210 MG, 1 IN 1 DAYS, INTRAVENOUS
     Route: 042
     Dates: start: 20080211, end: 20080215
  4. CYTARABINE [Suspect]
     Indication: ACUTE MYELOID LEUKAEMIA
     Dosage: 2.1 G, 1 IN 1 DAYS, INTRAVENOUS
     Route: 042
     Dates: start: 20080211, end: 20080215
  5. ACYCLOVIR (ACICLOVIR /00587301/) [Concomitant]
  6. LORAZEPAM [Concomitant]
  7. LEVOFLOXACIN [Concomitant]

REACTIONS (4)
  - ACUTE MYELOID LEUKAEMIA [None]
  - ASTHENIA [None]
  - DISEASE PROGRESSION [None]
  - FEBRILE NEUTROPENIA [None]
